FAERS Safety Report 13771822 (Version 1)
Quarter: 2017Q3

REPORT INFORMATION
  Report Type: Report from Study
  Country: US (occurrence: US)
  Receive Date: 20170720
  Receipt Date: 20170720
  Transmission Date: 20171127
  Serious: Yes (Other)
  Sender: FDA-Public Use
  Company Number: US-BRISTOL-MYERS SQUIBB COMPANY-BMS-2017-062378

PATIENT

DRUGS (1)
  1. NIVOLUMAB [Suspect]
     Active Substance: NIVOLUMAB
     Indication: CENTRAL NERVOUS SYSTEM LYMPHOMA
     Dosage: 3 MG/KG, Q2WK
     Route: 042

REACTIONS (2)
  - Product use in unapproved indication [Unknown]
  - Chronic kidney disease [Unknown]
